FAERS Safety Report 10070828 (Version 1)
Quarter: 2014Q2

REPORT INFORMATION
  Report Type: Spontaneous
  Country: US (occurrence: None)
  Receive Date: 20140408
  Receipt Date: 20140408
  Transmission Date: 20141212
  Serious: Yes (Other)
  Sender: FDA-Public Use
  Company Number: 001704709A

PATIENT
  Age: 58 Year
  Sex: Female

DRUGS (3)
  1. MEANINGFUL BEAUTY CINDY CRAWFORD SKIN BRIGHTENING DECOLLETE AND NECK TREATMENT SPF 15 [Suspect]
     Dosage: TWICE DAILY DERMAL
     Dates: start: 20140116, end: 20140225
  2. MEANINGFUL BEAUTY ANTIOXIDANT DAY CREME WITH SPF 20 [Suspect]
     Dosage: TWICE DAILY DERMAL
     Dates: start: 20140116, end: 20140225
  3. HYPERTENSION MEDICATION [Concomitant]

REACTIONS (2)
  - Epistaxis [None]
  - Nasal congestion [None]
